FAERS Safety Report 7749713-4 (Version None)
Quarter: 2011Q3

REPORT INFORMATION
  Report Type: 
  Country: None (occurrence: None)
  Receive Date: 20110914
  Receipt Date: 20110909
  Transmission Date: 20111222
  Serious: Yes (Life-Threatening)
  Sender: FDA-Public Use
  Company Number: JP-PFIZER INC-2011197843

PATIENT
  Age: 7 Year
  Sex: Male

DRUGS (3)
  1. AMINOPHYLLINE [Concomitant]
     Route: 041
  2. CEFOTIAM [Concomitant]
     Route: 041
  3. HYDROCORTISONE SODIUM SUCCINATE [Suspect]
     Dosage: UNK
     Route: 041

REACTIONS (1)
  - DRUG HYPERSENSITIVITY [None]
